FAERS Safety Report 5430615-3 (Version None)
Quarter: 2007Q3

REPORT INFORMATION
  Report Type: 
  Country: None (occurrence: None)
  Receive Date: 20070830
  Receipt Date: 20070827
  Transmission Date: 20080115
  Serious: Yes (Hospitalization)
  Sender: FDA-Public Use
  Company Number: HQWYE927707OCT05

PATIENT
  Sex: Female

DRUGS (10)
  1. CORDAREX [Suspect]
     Indication: ATRIAL FIBRILLATION
     Dosage: 200 MG TABLET, DOSE AND FREQUENCY NOT PROVIDED
     Route: 048
     Dates: start: 20050405, end: 20050829
  2. HYDROCHLOROTHIAZIDE/RAMIPRIL [Concomitant]
     Dosage: 2.5 MG/FREQUENCY NOT PROVIDED
     Route: 048
  3. PANTOPRAZOLE SODIUM [Concomitant]
     Dosage: 40 MG/FREQUENCY NOT PROVIDED
     Route: 048
  4. FALITHROM [Concomitant]
     Dosage: ^ACCORDING TO VALUE^
     Route: 048
  5. METHIMAZOLE [Concomitant]
     Dosage: 20 MG/FREQUENCY NOT PROVIDED
     Route: 048
     Dates: start: 20050411, end: 20050808
  6. TAVOR [Concomitant]
     Dosage: 1.5 MG/FREQUENCY NOT PROVIDED
     Route: 048
  7. VENO SL [Concomitant]
     Dosage: 300 MG/FREQUENCY NOT PROVIDED
     Route: 048
  8. BUDESONIDE [Concomitant]
     Dosage: ^2 X 1 STROKE^
     Route: 048
  9. DIGITOXIN TAB [Concomitant]
     Dosage: 0.07 MG/FREQUENCY NOT PROVIDED
     Route: 048
  10. TRIAMTERENE AND HYDROCHLOROTHIAZIDE [Concomitant]
     Dosage: ^DOSE 2-0-0^
     Route: 048

REACTIONS (4)
  - AGEUSIA [None]
  - DIZZINESS [None]
  - HYPERTHYROIDISM [None]
  - MUSCLE CONTRACTIONS INVOLUNTARY [None]
